FAERS Safety Report 5007798-2 (Version None)
Quarter: 2006Q2

REPORT INFORMATION
  Report Type: 
  Country: None (occurrence: None)
  Receive Date: 20060522
  Receipt Date: 20060517
  Transmission Date: 20061013
  Serious: Yes (Hospitalization)
  Sender: FDA-Public Use
  Company Number: FR-GLAXOSMITHKLINE-B0424043A

PATIENT
  Age: 22 Year
  Sex: Female

DRUGS (6)
  1. ZELITREX [Suspect]
     Route: 048
  2. ASPIRIN [Suspect]
     Route: 048
     Dates: start: 20060407, end: 20060412
  3. ESTROGEL [Suspect]
     Route: 061
     Dates: start: 20060401
  4. ORACILLINE [Suspect]
     Route: 048
  5. UTROGESTAN [Suspect]
     Route: 048
     Dates: start: 20060401
  6. ZECLAR [Suspect]
     Route: 048
     Dates: start: 20060407, end: 20060412

REACTIONS (1)
  - PAIN IN EXTREMITY [None]
